FAERS Safety Report 6500144-4 (Version None)
Quarter: 2009Q4

REPORT INFORMATION
  Report Type: 
  Country: None (occurrence: None)
  Receive Date: 20091216
  Receipt Date: 20091207
  Transmission Date: 20100525
  Serious: Yes (Hospitalization, Other)
  Sender: FDA-Public Use
  Company Number: NI-ASTRAZENECA-2009SE30486

PATIENT
  Age: 28 Year
  Sex: Female

DRUGS (1)
  1. DIPRIVAN [Suspect]
     Indication: SEDATIVE THERAPY
     Route: 042
     Dates: start: 20091128, end: 20091128

REACTIONS (1)
  - SEPTIC EMBOLUS [None]
